FAERS Safety Report 5521259-3 (Version None)
Quarter: 2007Q4

REPORT INFORMATION
  Report Type: 
  Country: None (occurrence: None)
  Receive Date: 20071119
  Receipt Date: 20071107
  Transmission Date: 20080405
  Serious: Yes (Life-Threatening, Hospitalization)
  Sender: FDA-Public Use
  Company Number: RU-GENENTECH-236378

PATIENT
  Sex: Male
  Weight: 82.5 kg

DRUGS (9)
  1. RITUXIMAB [Suspect]
     Indication: CHRONIC LYMPHOCYTIC LEUKAEMIA
     Dosage: 375 MG/M2, UNK
     Route: 042
     Dates: start: 20060928
  2. FLUDARABINE PHOSPHATE [Suspect]
     Indication: CHRONIC LYMPHOCYTIC LEUKAEMIA
     Dosage: 25 MG/M2, UNK
     Route: 042
     Dates: start: 20060929
  3. FLUDARABINE PHOSPHATE [Suspect]
     Dosage: 37 MG, UNK
     Route: 042
     Dates: start: 20061025
  4. FLUDARABINE PHOSPHATE [Suspect]
     Dosage: 24.5 MG, UNK
     Route: 042
     Dates: start: 20061226
  5. CYCLOPHOSPHAMIDE [Suspect]
     Indication: CHRONIC LYMPHOCYTIC LEUKAEMIA
     Dosage: 250 MG/M2, UNK
     Route: 042
     Dates: start: 20060928
  6. CYCLOPHOSPHAMIDE [Suspect]
     Dosage: 370 MG, UNK
     Route: 042
     Dates: start: 20061025
  7. CYCLOPHOSPHAMIDE [Suspect]
     Dosage: 245 MG, UNK
     Route: 042
     Dates: start: 20061226
  8. AMOXICLAV [Concomitant]
     Indication: DRUG USE FOR UNKNOWN INDICATION
     Dosage: 1250 MG, UNK
     Dates: start: 20070201, end: 20070207
  9. NEUPOGEN [Concomitant]
     Indication: DRUG USE FOR UNKNOWN INDICATION
     Route: 065

REACTIONS (1)
  - CAVERNOUS SINUS THROMBOSIS [None]
